FAERS Safety Report 17324079 (Version 2)
Quarter: 2020Q1

REPORT INFORMATION
  Report Type: Spontaneous
  Country: US (occurrence: US)
  Receive Date: 20200127
  Receipt Date: 20200308
  Transmission Date: 20200409
  Serious: Yes (Hospitalization, Disabling, Other)
  Sender: FDA-Public Use
  Company Number: US-NOVOPROD-707512

PATIENT
  Age: 66 Year
  Sex: Male

DRUGS (2)
  1. NOVOLOG [Suspect]
     Active Substance: INSULIN ASPART
     Dosage: 15 UNITS 3 TIMES A DAY, 5 OR 6 UNITS PRN HS
     Route: 058
     Dates: start: 2004
  2. NOVOLOG [Suspect]
     Active Substance: INSULIN ASPART
     Indication: TYPE 2 DIABETES MELLITUS
     Dosage: 15 UNITS 3 TIMES A DAY, 5 OR 6 UNITS PRN HS
     Route: 058
     Dates: start: 2004

REACTIONS (9)
  - Cataract [Recovered/Resolved]
  - Arterial injury [Unknown]
  - Product quality issue [Unknown]
  - Astigmatism [Not Recovered/Not Resolved]
  - Arterial occlusive disease [Not Recovered/Not Resolved]
  - Glycosylated haemoglobin increased [Unknown]
  - Macular degeneration [Not Recovered/Not Resolved]
  - Diabetes mellitus inadequate control [Unknown]
  - Diabetes mellitus inadequate control [Unknown]

NARRATIVE: CASE EVENT DATE: 2010
